FAERS Safety Report 20787318 (Version 1)
Quarter: 2022Q2

REPORT INFORMATION
  Report Type: Spontaneous
  Country: US (occurrence: US)
  Receive Date: 20220505
  Receipt Date: 20220505
  Transmission Date: 20220721
  Serious: No
  Sender: FDA-Public Use
  Company Number: US-AMGEN-USASP2022075329

PATIENT
  Age: 53 Year
  Sex: Female

DRUGS (4)
  1. NEULASTA [Suspect]
     Active Substance: PEGFILGRASTIM
     Indication: Neutropenia
     Dosage: UNK
     Route: 065
  2. CARBOPLATIN [Concomitant]
     Active Substance: CARBOPLATIN
     Indication: Product used for unknown indication
     Dosage: UNK
     Route: 065
  3. PREDNISONE [Concomitant]
     Active Substance: PREDNISONE
     Indication: Product used for unknown indication
     Dosage: UNK
     Route: 065
  4. TAXOL [Concomitant]
     Active Substance: PACLITAXEL
     Indication: Product used for unknown indication
     Dosage: UNK
     Route: 065

REACTIONS (1)
  - Blood glucose abnormal [Unknown]

NARRATIVE: CASE EVENT DATE: 20220428
